FAERS Safety Report 25477190 (Version 1)
Quarter: 2025Q2

REPORT INFORMATION
  Report Type: Spontaneous
  Country: US (occurrence: US)
  Receive Date: 20250625
  Receipt Date: 20250625
  Transmission Date: 20250716
  Serious: No
  Sender: ALKEM
  Company Number: US-ALKEM LABORATORIES LIMITED-US-ALKEM-2024-17040

PATIENT
  Sex: Female

DRUGS (1)
  1. CINACALCET [Suspect]
     Active Substance: CINACALCET
     Indication: Hyperparathyroidism primary
     Dosage: 60 MILLIGRAM, QD
     Route: 065

REACTIONS (2)
  - Nausea [Unknown]
  - Exposure during pregnancy [Unknown]
